FAERS Safety Report 5546243-5 (Version None)
Quarter: 2007Q4

REPORT INFORMATION
  Report Type: 
  Country: None (occurrence: None)
  Receive Date: 20071211
  Receipt Date: 20071128
  Transmission Date: 20080405
  Serious: Yes (Life-Threatening, Hospitalization)
  Sender: FDA-Public Use
  Company Number: NL-AMGEN-US255846

PATIENT
  Sex: Male
  Weight: 100 kg

DRUGS (6)
  1. ENBREL [Suspect]
     Indication: ANKYLOSING SPONDYLITIS
     Route: 058
     Dates: start: 20070424, end: 20070425
  2. IBUPROFEN [Concomitant]
     Indication: PAIN
     Dosage: 600 MG WHENEVER NECESSARY
     Route: 065
  3. IBUPROFEN [Concomitant]
     Indication: INFLAMMATION
  4. ZOPICLONE [Concomitant]
     Indication: SLEEP DISORDER
     Dosage: 10 MG
     Route: 065
  5. TRAMADOL HCL [Concomitant]
     Indication: PAIN
     Route: 065
     Dates: start: 19920101
  6. TRAMADOL HCL [Concomitant]
     Indication: INFLAMMATION

REACTIONS (7)
  - GENERALISED ERYTHEMA [None]
  - HYPERSENSITIVITY [None]
  - HYPERTENSION [None]
  - INJECTION SITE INDURATION [None]
  - PRURITUS GENERALISED [None]
  - SCLERAL HYPERAEMIA [None]
  - SHOCK [None]
